FAERS Safety Report 4731295-2 (Version None)
Quarter: 2005Q3

REPORT INFORMATION
  Report Type: 
  Country: None (occurrence: None)
  Receive Date: 20050729
  Receipt Date: 20050729
  Transmission Date: 20060218
  Serious: Yes (Life-Threatening, Hospitalization, Disabling)
  Sender: FDA-Public Use
  Company Number: None

PATIENT
  Age: 45 Year
  Sex: Male
  Weight: 116.5744 kg

DRUGS (3)
  1. ATROPINE [Suspect]
     Indication: NICOTINE DEPENDENCE
     Dosage: 0.2 MG, 0.4 MG SUBCUTANEOUS
     Route: 058
     Dates: start: 20040917, end: 20040917
  2. SCOPOLAMINE [Suspect]
     Dosage: 0.2 MG  0.4 MG SUBCUTANEOUS
     Route: 058
     Dates: start: 20040917, end: 20040917
  3. INTRATHECAL MORPHINE [Concomitant]

REACTIONS (4)
  - CONFUSIONAL STATE [None]
  - ERECTILE DYSFUNCTION [None]
  - PRIAPISM [None]
  - SEDATION [None]
